FAERS Safety Report 9316792 (Version 1)
Quarter: 2013Q2

REPORT INFORMATION
  Report Type: Spontaneous
  Country: US (occurrence: US)
  Receive Date: 20130530
  Receipt Date: 20130530
  Transmission Date: 20140414
  Serious: No
  Sender: FDA-Public Use
  Company Number: US-MYLANLABS-2013S1005715

PATIENT
  Age: 55 Year
  Sex: Male
  Weight: 104.33 kg

DRUGS (2)
  1. ZOLPIDEM TABLETS [Suspect]
     Indication: INSOMNIA
     Route: 048
  2. XANAX [Concomitant]
     Indication: INSOMNIA

REACTIONS (2)
  - Back pain [Not Recovered/Not Resolved]
  - Stress [None]
